FAERS Safety Report 23443500 (Version 1)
Quarter: 2024Q1

REPORT INFORMATION
  Report Type: Report from Study
  Country: PH (occurrence: PH)
  Receive Date: 20240125
  Receipt Date: 20240125
  Transmission Date: 20240409
  Serious: Yes (Death)
  Sender: FDA-Public Use
  Company Number: PH-OTSUKA-2024_001888

PATIENT
  Sex: Female

DRUGS (1)
  1. TOLVAPTAN [Suspect]
     Active Substance: TOLVAPTAN
     Indication: Oedema
     Dosage: UNK UNK, QD
     Route: 048

REACTIONS (2)
  - Respiratory arrest [Fatal]
  - Product use in unapproved indication [Unknown]
